FAERS Safety Report 5683863-1 (Version None)
Quarter: 2008Q1

REPORT INFORMATION
  Report Type: 
  Country: None (occurrence: None)
  Receive Date: 20080326
  Receipt Date: 20080215
  Transmission Date: 20080703
  Serious: Yes (Life-Threatening, Hospitalization)
  Sender: FDA-Public Use
  Company Number: 001#1#2008-00118

PATIENT
  Age: 83 Year
  Sex: Female

DRUGS (1)
  1. NEUPRO [Suspect]
     Indication: PARKINSON'S DISEASE
     Dosage: 2 MG/24H (2 MG/24H 1 IN 1 DAY(SS) TRANSDERMAL
     Route: 062
     Dates: start: 20080131

REACTIONS (7)
  - ANAPHYLACTIC SHOCK [None]
  - APPLICATION SITE REACTION [None]
  - ATELECTASIS [None]
  - BLOOD CHOLESTEROL INCREASED [None]
  - BRONCHOSPASM [None]
  - DERMATITIS EXFOLIATIVE [None]
  - HUMERUS FRACTURE [None]
